FAERS Safety Report 6878262-0 (Version None)
Quarter: 2010Q2

REPORT INFORMATION
  Report Type: 
  Country: None (occurrence: None)
  Receive Date: 20100623
  Receipt Date: 20081231
  Transmission Date: 20101027
  Serious: No
  Sender: FDA-Public Use
  Company Number: 2008-00144

PATIENT
  Age: 51 Year
  Sex: Female
  Weight: 55.3388 kg

DRUGS (8)
  1. ZICAM COLD REMEDY NASAL GEL [Suspect]
     Indication: NASAL CONGESTION
     Dosage: 2 DOSES X 1 DAY
     Dates: start: 20081224, end: 20081225
  2. SINEX NASAL SPRAY (OXYMETAZOLINE HCL) [Concomitant]
  3. KEPPRA [Concomitant]
  4. TIAZAC [Concomitant]
  5. HYDROCHLOROTHIAZIDE [Concomitant]
  6. EFFEXOR XR [Concomitant]
  7. TRAZODONE HCL [Concomitant]
  8. TOPAMAX [Concomitant]

REACTIONS (2)
  - AGEUSIA [None]
  - ANOSMIA [None]
